FAERS Safety Report 5009280-5 (Version None)
Quarter: 2006Q2

REPORT INFORMATION
  Report Type: 
  Country: None (occurrence: None)
  Receive Date: 20060522
  Receipt Date: 20060505
  Transmission Date: 20061013
  Serious: Yes (Other)
  Sender: FDA-Public Use
  Company Number: CIP06001009

PATIENT
  Sex: Female

DRUGS (4)
  1. ACTONEL [Suspect]
     Dosage: 35 MG ONCE WEEKLY, ORAL
     Route: 048
     Dates: start: 20030101
  2. THYROID TAB [Concomitant]
  3. CALCIUM GLUCONATE [Concomitant]
  4. THYROID TAB [Concomitant]

REACTIONS (4)
  - BACK PAIN [None]
  - CATARACT [None]
  - HYPOAESTHESIA [None]
  - KERATOCONJUNCTIVITIS SICCA [None]
